FAERS Safety Report 15703297 (Version 1)
Quarter: 2018Q4

REPORT INFORMATION
  Report Type: Spontaneous
  Country: US (occurrence: US)
  Receive Date: 20181127
  Receipt Date: 20181127
  Transmission Date: 20190205
  Serious: Yes (Life-Threatening)
  Sender: FDA-Public Use
  Company Number: None

PATIENT
  Age: 58 Year
  Sex: Female
  Weight: 78.93 kg

DRUGS (1)
  1. CLEOCIN [Suspect]
     Active Substance: CLINDAMYCIN PHOSPHATE
     Indication: CELLULITIS
     Dates: start: 20181113

REACTIONS (6)
  - Drug intolerance [None]
  - External ear inflammation [None]
  - Rash generalised [None]
  - Swelling face [None]
  - Therapeutic response changed [None]
  - Ear swelling [None]

NARRATIVE: CASE EVENT DATE: 20180510
